FAERS Safety Report 10255864 (Version 1)
Quarter: 2014Q2

REPORT INFORMATION
  Report Type: Spontaneous
  Country: US (occurrence: None)
  Receive Date: 20140522
  Receipt Date: 20140522
  Transmission Date: 20141212
  Serious: No
  Sender: FDA-Public Use
  Company Number: 1000053297

PATIENT
  Age: 58 Year
  Sex: Female

DRUGS (8)
  1. TUDORZA PRESSAIR (ACLIDINIUM BROMIDE) (400 MICROGRAM, POWDER) [Suspect]
     Indication: CHRONIC OBSTRUCTIVE PULMONARY DISEASE
     Dosage: 800 MCG (400 MCG, 21 IN 1 D), RESPIRATORY (INHALATION)
     Route: 055
     Dates: start: 2013
  2. TUDORZA PRESSAIR (ACLIDINIUM BROMIDE) (400 MICROGRAM, POWDER) [Suspect]
     Indication: EMPHYSEMA
     Dosage: 800 MCG (400 MCG, 21 IN 1 D), RESPIRATORY (INHALATION)
     Route: 055
     Dates: start: 2013
  3. ATIVAN (LORAZEPAM) (LORAZEPAM) [Concomitant]
  4. DALIRESP (ROFLUMILAST) [Concomitant]
  5. LASIX (FUROSEMIDE) [Concomitant]
  6. POTASSIUM [Concomitant]
  7. PRILOSEC (OMEPRAXOLE) [Concomitant]
  8. DUONEB (COMBIVENT) [Concomitant]

REACTIONS (3)
  - Panic attack [None]
  - Dizziness [None]
  - Dry eye [None]
